FAERS Safety Report 16792919 (Version 1)
Quarter: 2019Q3

REPORT INFORMATION
  Report Type: Spontaneous
  Country: IT (occurrence: IT)
  Receive Date: 20190910
  Receipt Date: 20190910
  Transmission Date: 20191005
  Serious: Yes (Other)
  Sender: FDA-Public Use
  Company Number: IT-AUROBINDO-AUR-APL-2018-022169

PATIENT

DRUGS (18)
  1. ATENOLOL. [Suspect]
     Active Substance: ATENOLOL
     Indication: HYPERTENSION
     Dosage: UNK
     Route: 065
  2. CYCLOSPORINE. [Suspect]
     Active Substance: CYCLOSPORINE
     Indication: SKIN HYPERPIGMENTATION
     Dosage: UNK
     Route: 065
  3. INFLIXIMAB [Suspect]
     Active Substance: INFLIXIMAB
     Indication: PSORIATIC ARTHROPATHY
  4. ADALIMUMAB [Suspect]
     Active Substance: ADALIMUMAB
     Indication: CUTANEOUS SYMPTOM
     Dosage: UNK
     Route: 065
  5. METHOTREXATE. [Suspect]
     Active Substance: METHOTREXATE
     Indication: PRODUCT USED FOR UNKNOWN INDICATION
     Dosage: 10 MILLIGRAM, EVERY WEEK
     Route: 065
  6. ESCITALOPRAM [Suspect]
     Active Substance: ESCITALOPRAM OXALATE
     Indication: DEPRESSION
     Dosage: UNK
     Route: 065
  7. APREMILAST [Interacting]
     Active Substance: APREMILAST
     Indication: PSORIATIC ARTHROPATHY
     Dosage: 30 MG, BID,12 HOUR
     Route: 048
  8. INFLIXIMAB [Suspect]
     Active Substance: INFLIXIMAB
     Indication: CUTANEOUS SYMPTOM
     Dosage: UNK
     Route: 065
  9. INFLIXIMAB [Suspect]
     Active Substance: INFLIXIMAB
     Indication: PSORIASIS
  10. ADALIMUMAB [Suspect]
     Active Substance: ADALIMUMAB
     Indication: PSORIASIS
  11. ACITRETIN. [Suspect]
     Active Substance: ACITRETIN
     Indication: PRODUCT USED FOR UNKNOWN INDICATION
     Dosage: UNK
     Route: 065
  12. ADALIMUMAB [Suspect]
     Active Substance: ADALIMUMAB
     Indication: PSORIATIC ARTHROPATHY
  13. CARDIOASPIRIN [Suspect]
     Active Substance: ASPIRIN
     Indication: ATRIAL FIBRILLATION
     Dosage: UNK
     Route: 065
  14. PROPAFENONE. [Suspect]
     Active Substance: PROPAFENONE
     Indication: OSTEOPOROSIS
     Dosage: UNK
     Route: 065
  15. ASPIRIN. [Suspect]
     Active Substance: ASPIRIN
     Indication: PRODUCT USED FOR UNKNOWN INDICATION
     Dosage: UNK
     Route: 065
  16. CALCIPOTRIOL [Suspect]
     Active Substance: CALCIPOTRIENE
     Indication: PSORIASIS
     Dosage: UNK
     Route: 061
  17. APREMILAST [Interacting]
     Active Substance: APREMILAST
     Indication: PSORIASIS
     Dosage: 30 MILLIGRAM, TWO TIMES A DAY
     Route: 048
  18. COLECALCIFEROL [Suspect]
     Active Substance: CHOLECALCIFEROL
     Indication: VITAMIN D DECREASED
     Dosage: UNK
     Route: 065

REACTIONS (12)
  - Drug ineffective [Unknown]
  - Skin hyperpigmentation [Unknown]
  - Weight decreased [Unknown]
  - Seborrhoeic keratosis [Unknown]
  - Drug interaction [Unknown]
  - Psoriasis area severity index [Unknown]
  - Prostatic specific antigen [Unknown]
  - Antinuclear antibody positive [Recovering/Resolving]
  - Musculoskeletal stiffness [Unknown]
  - Visual analogue scale [Unknown]
  - Ligament sprain [Unknown]
  - Tenosynovitis [Unknown]
